FAERS Safety Report 11053790 (Version 2)
Quarter: 2015Q2

REPORT INFORMATION
  Report Type: Spontaneous
  Country: US (occurrence: US)
  Receive Date: 20150421
  Receipt Date: 20150525
  Transmission Date: 20150821
  Serious: No
  Sender: FDA-Public Use
  Company Number: US-JNJFOC-20131005204

PATIENT
  Age: 58 Year
  Sex: Male

DRUGS (6)
  1. RISPERDAL [Suspect]
     Active Substance: RISPERIDONE
     Indication: MAJOR DEPRESSION
     Route: 065
     Dates: end: 20130906
  2. SEROQUEL [Suspect]
     Active Substance: QUETIAPINE FUMARATE
     Indication: MAJOR DEPRESSION
     Route: 065
     Dates: end: 20130906
  3. SAPHRIS [Suspect]
     Active Substance: ASENAPINE MALEATE
     Indication: MAJOR DEPRESSION
     Route: 065
     Dates: end: 20130906
  4. LATUDA [Suspect]
     Active Substance: LURASIDONE HYDROCHLORIDE
     Indication: MAJOR DEPRESSION
     Route: 065
  5. ZYPREXA [Suspect]
     Active Substance: OLANZAPINE
     Indication: MAJOR DEPRESSION
     Route: 065
     Dates: end: 20130906
  6. GEODON [Suspect]
     Active Substance: ZIPRASIDONE HYDROCHLORIDE\ZIPRASIDONE MESYLATE
     Indication: MAJOR DEPRESSION
     Route: 065
     Dates: end: 20130906

REACTIONS (5)
  - Dermatillomania [Recovered/Resolved]
  - Weight increased [Recovered/Resolved]
  - Tremor [Recovered/Resolved]
  - Sedation [Recovered/Resolved]
  - Drug ineffective [Recovered/Resolved]
